FAERS Safety Report 12708587 (Version 2)
Quarter: 2016Q3

REPORT INFORMATION
  Report Type: Spontaneous
  Country: JP (occurrence: JP)
  Receive Date: 20160901
  Receipt Date: 20160915
  Transmission Date: 20161109
  Serious: Yes (Other)
  Sender: FDA-Public Use
  Company Number: JP-PFIZER INC-2016403269

PATIENT
  Age: 82 Year
  Sex: Male

DRUGS (3)
  1. CELECOX [Suspect]
     Active Substance: CELECOXIB
     Dosage: UNK
     Route: 048
  2. LOXOPROFEN [Concomitant]
     Active Substance: LOXOPROFEN
     Dosage: UNK
  3. REBAMIPIDE [Concomitant]
     Active Substance: REBAMIPIDE
     Dosage: UNK

REACTIONS (1)
  - Facial paralysis [Unknown]

NARRATIVE: CASE EVENT DATE: 20160822
